FAERS Safety Report 9099719 (Version 1)
Quarter: 2013Q1

REPORT INFORMATION
  Report Type: Spontaneous
  Country: US (occurrence: US)
  Receive Date: 20130214
  Receipt Date: 20130214
  Transmission Date: 20140127
  Serious: Yes (Other)
  Sender: FDA-Public Use
  Company Number: US-BAYER-2013-018278

PATIENT
  Age: 75 Year
  Sex: Male
  Weight: 106.58 kg

DRUGS (5)
  1. BAYER ASPIRIN REGIMEN ADULT LOW STRENGTH [Suspect]
     Dosage: 1 DF, QD
     Route: 048
     Dates: start: 199210, end: 201207
  2. CARVEDILOL [Concomitant]
  3. AMIODARONE [Concomitant]
  4. LOSARTAN POTASSIUM [Concomitant]
  5. FUROSEMIDE [Concomitant]

REACTIONS (1)
  - Atrial fibrillation [Recovered/Resolved]
